FAERS Safety Report 4749938-6 (Version None)
Quarter: 2005Q3

REPORT INFORMATION
  Report Type: 
  Country: None (occurrence: None)
  Receive Date: 20050822
  Receipt Date: 20050808
  Transmission Date: 20060218
  Serious: Yes (Death)
  Sender: FDA-Public Use
  Company Number: B0390504A

PATIENT

DRUGS (11)
  1. ALKERAN [Suspect]
     Indication: NON-HODGKIN'S LYMPHOMA
     Dosage: 180 MG/M2
  2. DOXORUBICIN HCL [Suspect]
     Indication: NON-HODGKIN'S LYMPHOMA
     Dosage: 50 MG/M2/PER DAY
  3. VINCRISTINE [Concomitant]
     Indication: NON-HODGKIN'S LYMPHOMA
     Dosage: SEE DOSAGE TEXT
  4. PREDNISONE [Suspect]
     Indication: NON-HODGKIN'S LYMPHOMA
     Dosage: 40 MG/M2/PER DAY
  5. CYCLOPHOSPHAMIDE [Suspect]
     Indication: NON-HODGKIN'S LYMPHOMA
     Dosage: 7 G/M2/CYCLIC
  6. METHOTREXATE (FORMULATION UNKNOWN) (METHOTREXATE) [Suspect]
     Indication: NON-HODGKIN'S LYMPHOMA
     Dosage: 8 G/M2/CYCLIC
  7. ETOPOSIDE [Suspect]
     Indication: NON-HODGKIN'S LYMPHOMA
     Dosage: 2 G/M2/CYCLIC
  8. MITOZANTRONE (FORMULATION UNKNOWN) (MITOZANTRONE) [Suspect]
     Dosage: 60 MG/M2
  9. GRANULOCYTE COL. STIM FACT [Concomitant]
  10. CALCIUM FOLINATE [Concomitant]
  11. MARROW AUTOTRANSPLANT [Concomitant]

REACTIONS (2)
  - LEUKAEMIA [None]
  - MYELODYSPLASTIC SYNDROME [None]
